FAERS Safety Report 5424833-8 (Version None)
Quarter: 2007Q3

REPORT INFORMATION
  Report Type: 
  Country: None (occurrence: None)
  Receive Date: 20070824
  Receipt Date: 20070813
  Transmission Date: 20080115
  Serious: Yes (Other)
  Sender: FDA-Public Use
  Company Number: FR-AMGEN-UK231997

PATIENT
  Age: 52 Year
  Sex: Female
  Weight: 76 kg

DRUGS (16)
  1. MIMPARA [Suspect]
     Indication: HYPERPARATHYROIDISM SECONDARY
     Route: 048
     Dates: start: 20050408
  2. ASPEGIC 325 [Concomitant]
  3. RENAGEL [Concomitant]
  4. EZETROL [Concomitant]
  5. PYRIDOXINE HCL [Concomitant]
  6. CLONAZEPAM [Concomitant]
  7. THIAMINE [Concomitant]
  8. SECTRAL [Concomitant]
  9. EPIVIR [Concomitant]
  10. OMEPRAZOLE [Concomitant]
  11. SUSTIVA [Concomitant]
  12. EUPRESSYL [Concomitant]
  13. OROCAL [Concomitant]
  14. ZIAGEN [Concomitant]
  15. ALFACALCIDOL [Concomitant]
  16. LONNOTEN [Concomitant]

REACTIONS (1)
  - XANTHOPSIA [None]
